FAERS Safety Report 13240917 (Version 1)
Quarter: 2017Q1

REPORT INFORMATION
  Report Type: Spontaneous
  Country: US (occurrence: US)
  Receive Date: 20170216
  Receipt Date: 20170216
  Transmission Date: 20170428
  Serious: No
  Sender: FDA-Public Use
  Company Number: US-009507513-1702USA002410

PATIENT
  Age: 29 Year
  Sex: Female
  Weight: 70.3 kg

DRUGS (1)
  1. NUVARING [Suspect]
     Active Substance: ETHINYL ESTRADIOL\ETONOGESTREL
     Indication: CONTRACEPTION
     Dosage: 1 RING; 3 WEEKS IN, ONE WEEK OUT
     Route: 067
     Dates: start: 20170121

REACTIONS (3)
  - Inappropriate schedule of drug administration [Unknown]
  - Abnormal withdrawal bleeding [Unknown]
  - Device expulsion [Not Recovered/Not Resolved]

NARRATIVE: CASE EVENT DATE: 20170131
